FAERS Safety Report 18046816 (Version 1)
Quarter: 2020Q3

REPORT INFORMATION
  Report Type: Spontaneous
  Country: IT (occurrence: IT)
  Receive Date: 20200720
  Receipt Date: 20200720
  Transmission Date: 20201103
  Serious: Yes (Hospitalization)
  Sender: FDA-Public Use
  Company Number: NVSC2020IT200652

PATIENT
  Age: 34 Year
  Sex: Male

DRUGS (1)
  1. ACETAMINOPHEN (PARACETAMOL) [Suspect]
     Active Substance: ACETAMINOPHEN
     Indication: COVID-19
     Dosage: 1000 MG
     Route: 065

REACTIONS (2)
  - Rash maculo-papular [Recovered/Resolved]
  - Product use in unapproved indication [Unknown]
